FAERS Safety Report 5444868-9 (Version None)
Quarter: 2007Q3

REPORT INFORMATION
  Report Type: 
  Country: None (occurrence: None)
  Receive Date: 20070906
  Receipt Date: 20070830
  Transmission Date: 20080115
  Serious: Yes (Other)
  Sender: FDA-Public Use
  Company Number: JP-ROCHE-494572

PATIENT
  Age: 79 Year
  Sex: Male

DRUGS (3)
  1. TICLOPIDINE HCL [Suspect]
     Indication: ARTERIOSCLEROSIS
     Route: 048
     Dates: start: 20050901, end: 20060614
  2. ASPIRIN [Suspect]
     Indication: DRUG USE FOR UNKNOWN INDICATION
     Route: 048
     Dates: start: 20050901, end: 20060614
  3. PLETAL [Suspect]
     Indication: DRUG USE FOR UNKNOWN INDICATION
     Route: 048
     Dates: start: 20060118, end: 20060614

REACTIONS (2)
  - DERMATITIS EXFOLIATIVE [None]
  - LYMPHADENOPATHY [None]
